FAERS Safety Report 23258561 (Version 3)
Quarter: 2023Q4

REPORT INFORMATION
  Report Type: Spontaneous
  Country: US (occurrence: US)
  Receive Date: 20231204
  Receipt Date: 20231218
  Transmission Date: 20240110
  Serious: No
  Sender: FDA-Public Use
  Company Number: US-OPELLA-2023OHG015681

PATIENT
  Age: 48 Year
  Sex: Male

DRUGS (2)
  1. ICY HOT WITH LIDOCAINE NO-MESS [Suspect]
     Active Substance: LIDOCAINE\MENTHOL
     Indication: Product used for unknown indication
  2. ICY HOT WITH LIDOCAINE NO-MESS [Suspect]
     Active Substance: LIDOCAINE\MENTHOL

REACTIONS (2)
  - Drug ineffective [Unknown]
  - No adverse event [Unknown]
